FAERS Safety Report 23615708 (Version 1)
Quarter: 2024Q1

REPORT INFORMATION
  Report Type: Spontaneous
  Country: GB (occurrence: GB)
  Receive Date: 20240311
  Receipt Date: 20240311
  Transmission Date: 20240410
  Serious: Yes (Other)
  Sender: FDA-Public Use
  Company Number: None

PATIENT
  Age: 40 Year
  Sex: Female
  Weight: 100 kg

DRUGS (14)
  1. DOXYCYCLINE [Suspect]
     Active Substance: DOXYCYCLINE
     Dosage: TAKE TWO CAPSULES NOW AND THEN TAKE ONE CAPSULE ONCE A DAY FOR THE NEXT 4 DAYS,
     Route: 065
     Dates: start: 20240221, end: 20240221
  2. ZEROBASE [Concomitant]
     Dosage: APPLY TO SKIN FREQUENTLY AND LIBERALLY, AS OFTE...
     Dates: start: 20221121
  3. ALBUTEROL [Concomitant]
     Active Substance: ALBUTEROL
     Dosage: TIME INTERVAL: AS NECESSARY
     Dates: start: 20231002
  4. CLARITHROMYCIN [Concomitant]
     Active Substance: CLARITHROMYCIN
     Dates: start: 20240111, end: 20240118
  5. ERYTHROMYCIN [Concomitant]
     Active Substance: ERYTHROMYCIN
     Dates: start: 20240221
  6. OXYTETRACYCLINE [Concomitant]
     Active Substance: OXYTETRACYCLINE
     Dates: start: 20240129, end: 20240205
  7. AMOXICILLIN\CLAVULANATE POTASSIUM [Concomitant]
     Active Substance: AMOXICILLIN\CLAVULANATE POTASSIUM
     Dosage: TIME INTERVAL: 0.33333333 DAYS
     Dates: start: 20240124, end: 20240131
  8. PREDNISOLONE [Concomitant]
     Active Substance: PREDNISOLONE
     Dates: start: 20240215, end: 20240220
  9. SERTRALINE [Concomitant]
     Active Substance: SERTRALINE HYDROCHLORIDE
     Dates: start: 20230131
  10. BECLOMETHASONE\FORMOTEROL [Concomitant]
     Active Substance: BECLOMETHASONE\FORMOTEROL
     Dosage: PUFFS,
     Route: 055
     Dates: start: 20231220
  11. ELOCON [Concomitant]
     Active Substance: MOMETASONE FUROATE
     Dosage: APPLY DAILY FOR UP TO 6 WEEKS FOR SEVERE FLARE UP,
     Dates: start: 20230918
  12. BECLOMETHASONE DIPROPIONATE [Concomitant]
     Active Substance: BECLOMETHASONE DIPROPIONATE
     Dates: start: 20230918, end: 20231220
  13. AMOXICILLIN [Concomitant]
     Active Substance: AMOXICILLIN
     Dosage: TIME INTERVAL: 0.33333333 DAYS
     Dates: start: 20240103, end: 20240108
  14. FLUCLOXACILLIN [Concomitant]
     Active Substance: FLUCLOXACILLIN
     Dates: start: 20231214, end: 20231221

REACTIONS (1)
  - Wheezing [Recovered/Resolved]
